FAERS Safety Report 9862384 (Version 1)
Quarter: 2014Q1

REPORT INFORMATION
  Report Type: Spontaneous
  Country: CN (occurrence: CN)
  Receive Date: 20140203
  Receipt Date: 20140203
  Transmission Date: 20141002
  Serious: Yes (Hospitalization)
  Sender: FDA-Public Use
  Company Number: CN-MYLANLABS-2014S1001707

PATIENT
  Age: 63 Year
  Sex: Male

DRUGS (4)
  1. HYDROXYCHLOROQUINE [Suspect]
     Indication: CHRONIC ACTINIC DERMATITIS
     Route: 048
     Dates: start: 201112
  2. EBASTINE [Suspect]
     Indication: CHRONIC ACTINIC DERMATITIS
     Dosage: IN EVENING
     Route: 065
     Dates: start: 201112
  3. HALOMETASONE [Suspect]
     Indication: CHRONIC ACTINIC DERMATITIS
     Dosage: ON LESIONS
     Route: 061
     Dates: start: 201112
  4. ZINC OXIDE [Concomitant]
     Indication: CHRONIC ACTINIC DERMATITIS
     Dosage: ON LESIONS TWICE DAILY
     Route: 061
     Dates: start: 201112

REACTIONS (1)
  - Dermatitis psoriasiform [Recovered/Resolved]
